FAERS Safety Report 16570093 (Version 1)
Quarter: 2019Q3

REPORT INFORMATION
  Report Type: Report from Study
  Country: US (occurrence: US)
  Receive Date: 20190715
  Receipt Date: 20190715
  Transmission Date: 20191004
  Serious: Yes (Other)
  Sender: FDA-Public Use
  Company Number: US-ROCHE-2348437

PATIENT
  Sex: Female

DRUGS (1)
  1. OCREVUS [Suspect]
     Active Substance: OCRELIZUMAB
     Indication: RELAPSING MULTIPLE SCLEROSIS
     Dosage: YES?DATE OF TREATMENT: 26/JUL/2018
     Route: 065
     Dates: start: 20180711

REACTIONS (2)
  - Nasopharyngitis [Recovered/Resolved]
  - Wheezing [Recovered/Resolved]
